FAERS Safety Report 7687282-8 (Version None)
Quarter: 2011Q3

REPORT INFORMATION
  Report Type: 
  Country: None (occurrence: None)
  Receive Date: 20110816
  Receipt Date: 20110809
  Transmission Date: 20111222
  Serious: Yes (Hospitalization)
  Sender: FDA-Public Use
  Company Number: FR-PFIZER INC-2011182017

PATIENT
  Age: 59 Year
  Sex: Female

DRUGS (4)
  1. ALDACTAZINE [Concomitant]
     Indication: HYPERTENSION
     Dosage: UNK
     Route: 048
  2. HYPERIUM [Suspect]
     Indication: HYPERTENSION
     Dosage: 1 DF, 1X/DAY
     Route: 048
  3. TRILEPTAL [Suspect]
     Dosage: 600 MG/ MORNING; 300 MG/ EVENING
     Route: 048
     Dates: start: 20110427, end: 20110530
  4. ZOLOFT [Suspect]
     Indication: DEPRESSION
     Dosage: 1 DF, 1X/DAY
     Route: 048
     Dates: start: 20110503, end: 20110530

REACTIONS (1)
  - DRUG RASH WITH EOSINOPHILIA AND SYSTEMIC SYMPTOMS [None]
